FAERS Safety Report 6085691-4 (Version None)
Quarter: 2009Q1

REPORT INFORMATION
  Report Type: 
  Country: None (occurrence: None)
  Receive Date: 20090220
  Receipt Date: 20090210
  Transmission Date: 20090719
  Serious: Yes (Other)
  Sender: FDA-Public Use
  Company Number: DE-JNJFOC-20090202743

PATIENT

DRUGS (3)
  1. REMICADE [Suspect]
     Route: 042
  2. REMICADE [Suspect]
     Indication: PSORIASIS
     Dosage: TOTAL OF 10 INFUSIONS
     Route: 042
  3. INTRAARTICULAR STEROIDS [Concomitant]

REACTIONS (2)
  - FOOT OPERATION [None]
  - LOCALISED INFECTION [None]
